FAERS Safety Report 10182147 (Version 2)
Quarter: 2014Q2

REPORT INFORMATION
  Report Type: Spontaneous
  Country: US (occurrence: US)
  Receive Date: 20140520
  Receipt Date: 20140611
  Transmission Date: 20141212
  Serious: Yes (Other)
  Sender: FDA-Public Use
  Company Number: 2014SP000701

PATIENT
  Age: 27 Year
  Sex: Female
  Weight: 50.79 kg

DRUGS (3)
  1. GEMCITABINE [Suspect]
     Indication: SARCOMA
     Dates: start: 201302, end: 201302
  2. GEMCITABINE [Suspect]
     Indication: SARCOMA
     Dates: start: 201304, end: 201307
  3. DOCETAXEL [Suspect]
     Indication: SARCOMA
     Dates: start: 201304, end: 201307

REACTIONS (2)
  - Off label use [Recovered/Resolved]
  - Drug ineffective [Recovered/Resolved]
